FAERS Safety Report 6835808-6 (Version None)
Quarter: 2010Q3

REPORT INFORMATION
  Report Type: 
  Country: None (occurrence: None)
  Receive Date: 20100712
  Receipt Date: 20100712
  Transmission Date: 20110219
  Serious: Yes (Life-Threatening, Disabling, Other)
  Sender: FDA-Public Use
  Company Number: None

PATIENT
  Age: 9 Year
  Sex: Male
  Weight: 36.2878 kg

DRUGS (1)
  1. FOCALIN XR [Suspect]
     Indication: ATTENTION DEFICIT/HYPERACTIVITY DISORDER
     Dosage: 10 MG TWICE A DAY 2 A DAY PO
     Route: 048
     Dates: start: 20100707, end: 20100709

REACTIONS (4)
  - ASPHYXIA [None]
  - INTENTIONAL SELF-INJURY [None]
  - SUICIDAL IDEATION [None]
  - THINKING ABNORMAL [None]
